FAERS Safety Report 7773197-3 (Version None)
Quarter: 2011Q3

REPORT INFORMATION
  Report Type: 
  Country: None (occurrence: None)
  Receive Date: 20110922
  Receipt Date: 20110912
  Transmission Date: 20111222
  Serious: Yes (Other)
  Sender: FDA-Public Use
  Company Number: FR-BRISTOL-MYERS SQUIBB COMPANY-16055675

PATIENT
  Age: 58 Year
  Sex: Female

DRUGS (2)
  1. ABATACEPT [Suspect]
     Dosage: AT 0, 2 + 4 FOLLOWED BY 4 WEEKLY DOSING.
     Route: 042
     Dates: start: 20080801
  2. METHOTREXATE [Concomitant]

REACTIONS (1)
  - GUTTATE PSORIASIS [None]
